FAERS Safety Report 17854498 (Version 1)
Quarter: 2020Q2

REPORT INFORMATION
  Report Type: Spontaneous
  Country: US (occurrence: US)
  Receive Date: 20200603
  Receipt Date: 20200603
  Transmission Date: 20200714
  Serious: No
  Sender: FDA-Public Use
  Company Number: US-SA-2020SA141761

PATIENT

DRUGS (1)
  1. CAPRELSA [Suspect]
     Active Substance: VANDETANIB
     Indication: THYROID CANCER
     Dosage: 200MG ON MON, WED, FRI AND 100MG ON TUE, THU, SAT, SUN
     Route: 048
     Dates: start: 20190109

REACTIONS (3)
  - Rash [Unknown]
  - Hypoacusis [Unknown]
  - Dry skin [Unknown]
